FAERS Safety Report 16001913 (Version 2)
Quarter: 2019Q1

REPORT INFORMATION
  Report Type: Spontaneous
  Country: HR (occurrence: HR)
  Receive Date: 20190225
  Receipt Date: 20190227
  Transmission Date: 20190418
  Serious: Yes (Hospitalization)
  Sender: FDA-Public Use
  Company Number: HR-B.I. PHARMACEUTICALS,INC./RIDGEFIELD-2019-BI-007195

PATIENT

DRUGS (1)
  1. VARGATEF [Suspect]
     Active Substance: NINTEDANIB
     Indication: ADENOCARCINOMA
     Route: 065

REACTIONS (6)
  - Pyrexia [Unknown]
  - Nausea [Unknown]
  - Diarrhoea [Unknown]
  - Gastroenteritis rotavirus [Unknown]
  - Vomiting [Unknown]
  - Pain [Unknown]
